FAERS Safety Report 12304835 (Version 2)
Quarter: 2016Q2

REPORT INFORMATION
  Report Type: Report from Study
  Country: CA (occurrence: CA)
  Receive Date: 20160426
  Receipt Date: 20160516
  Transmission Date: 20160815
  Serious: Yes (Other)
  Sender: FDA-Public Use
  Company Number: CA-ROCHE-1745400

PATIENT
  Sex: Female

DRUGS (10)
  1. RHINOCORT TURBUHALER [Concomitant]
     Active Substance: BUDESONIDE
  2. ACTEMRA [Suspect]
     Active Substance: TOCILIZUMAB
     Indication: RHEUMATOID ARTHRITIS
     Route: 058
     Dates: end: 2016
  3. ACTEMRA [Suspect]
     Active Substance: TOCILIZUMAB
     Dosage: FIRST RPAP DOSE
     Route: 058
     Dates: start: 20151210, end: 2016
  4. AMERGE [Concomitant]
     Active Substance: NARATRIPTAN HYDROCHLORIDE
  5. OMEPRAZOLE. [Concomitant]
     Active Substance: OMEPRAZOLE
  6. VITAMIN C [Concomitant]
     Active Substance: ASCORBIC ACID
  7. TYLENOL WITH CODEINE [Concomitant]
     Active Substance: ACETAMINOPHEN\CODEINE PHOSPHATE
  8. DICLOFENAC [Concomitant]
     Active Substance: DICLOFENAC
  9. PREDNISONE. [Concomitant]
     Active Substance: PREDNISONE
  10. ZOPICLONE [Concomitant]
     Active Substance: ZOPICLONE

REACTIONS (3)
  - Nausea [Unknown]
  - Vomiting [Unknown]
  - Migraine [Unknown]
